FAERS Safety Report 10486924 (Version 1)
Quarter: 2014Q4

REPORT INFORMATION
  Report Type: Spontaneous
  Country: GB (occurrence: GB)
  Receive Date: 20141001
  Receipt Date: 20141001
  Transmission Date: 20150528
  Serious: Yes (Hospitalization)
  Sender: FDA-Public Use
  Company Number: GB-TEVA-511722ISR

PATIENT
  Sex: Male

DRUGS (4)
  1. METRONIDAZOLE. [Suspect]
     Active Substance: METRONIDAZOLE
     Indication: PERITONSILLAR ABSCESS
     Dosage: 2000 MILLIGRAM DAILY;
     Route: 041
     Dates: start: 20140910, end: 20140911
  2. BENZYLPENICILLIN [Concomitant]
     Active Substance: PENICILLIN G
     Indication: PERITONSILLAR ABSCESS
     Dosage: 2400 MILLIGRAM DAILY;
     Route: 041
     Dates: start: 20140907, end: 20140911
  3. METRONIDAZOLE. [Suspect]
     Active Substance: METRONIDAZOLE
     Indication: PERITONSILLAR ABSCESS
     Route: 048
     Dates: start: 20140907, end: 20140909
  4. BENZYLPENICILLIN [Concomitant]
     Active Substance: PENICILLIN G
     Indication: PERITONSILLAR ABSCESS
     Route: 048
     Dates: start: 20140907, end: 20140909

REACTIONS (1)
  - Liver function test abnormal [Unknown]

NARRATIVE: CASE EVENT DATE: 20140907
